FAERS Safety Report 6717192-1 (Version None)
Quarter: 2010Q2

REPORT INFORMATION
  Report Type: 
  Country: None (occurrence: None)
  Receive Date: 20100510
  Receipt Date: 20100427
  Transmission Date: 20101027
  Serious: Yes (Other)
  Sender: FDA-Public Use
  Company Number: PHHY2009CA16896

PATIENT
  Sex: Male

DRUGS (2)
  1. SANDOSTATIN LAR [Suspect]
     Indication: CARCINOID TUMOUR
     Dosage: 20 MG EVERY 4 WEEKS
     Route: 030
     Dates: start: 20050222
  2. SANDOSTATIN LAR [Suspect]
     Dosage: 30 MG, EVERY 4 WEEKS
     Route: 030

REACTIONS (5)
  - BLOOD PRESSURE INCREASED [None]
  - HEART RATE DECREASED [None]
  - INJECTION SITE PAIN [None]
  - PAIN [None]
  - WALKING DISABILITY [None]
